FAERS Safety Report 6384068-1 (Version None)
Quarter: 2009Q3

REPORT INFORMATION
  Report Type: 
  Country: None (occurrence: None)
  Receive Date: 20090929
  Receipt Date: 20090922
  Transmission Date: 20100115
  Serious: Yes (Other)
  Sender: FDA-Public Use
  Company Number: 2009SP026495

PATIENT
  Age: 43 Year
  Sex: Female

DRUGS (11)
  1. TEMODAL [Suspect]
     Indication: DRUG USE FOR UNKNOWN INDICATION
     Dosage: 1 DF
     Dates: start: 20081111, end: 20081209
  2. DIFLUCAN [Suspect]
     Indication: INTERTRIGO CANDIDA
     Dosage: 100 MG;QD;PO
     Route: 048
     Dates: start: 20081114
  3. CLARITHROMYCIN [Suspect]
     Indication: DRUG USE FOR UNKNOWN INDICATION
     Dosage: 500 MG;BID;INDRP
     Route: 041
     Dates: start: 20081218, end: 20081222
  4. BACTRIM [Suspect]
     Indication: DRUG USE FOR UNKNOWN INDICATION
     Dosage: 800 MG;TID;PO
     Route: 048
     Dates: start: 20081111, end: 20081215
  5. OMEPRAZOLE MAGNESIUM [Suspect]
     Indication: DRUG USE FOR UNKNOWN INDICATION
     Dosage: 20 MG;ONCE;PO
     Route: 048
     Dates: start: 20081215, end: 20081218
  6. TIENAM (IMIPENEM/CILASTATIN SODIUM) (NO PREF. NAME) [Suspect]
     Indication: DRUG USE FOR UNKNOWN INDICATION
     Dosage: 500 MG;QID;INDRP
     Route: 041
     Dates: start: 20081218, end: 20081230
  7. ZOFRAN [Suspect]
     Indication: DRUG USE FOR UNKNOWN INDICATION
     Dosage: 8 MG;QD;PO
     Route: 048
     Dates: start: 20080830, end: 20081211
  8. DEXAMETHASONE 0.5MG TAB [Concomitant]
  9. LYRICA [Concomitant]
  10. NEXIUM [Concomitant]
  11. ACETAMINOPHEN [Concomitant]

REACTIONS (4)
  - ALANINE AMINOTRANSFERASE INCREASED [None]
  - ASPARTATE AMINOTRANSFERASE INCREASED [None]
  - LIVER INJURY [None]
  - THROMBOCYTOPENIA [None]
